FAERS Safety Report 21360978 (Version 2)
Quarter: 2022Q4

REPORT INFORMATION
  Report Type: Spontaneous
  Country: US (occurrence: US)
  Receive Date: 20220921
  Receipt Date: 20221004
  Transmission Date: 20230113
  Serious: Yes (Hospitalization)
  Sender: FDA-Public Use
  Company Number: US-Calliditas-2022CAL00330

PATIENT
  Age: 75 Year
  Sex: Female

DRUGS (10)
  1. TARPEYO [Suspect]
     Active Substance: BUDESONIDE
     Indication: Haematuria
     Dosage: 16MG (4MG CAPSULES) ONCE DAILY
     Route: 048
     Dates: start: 20220812
  2. TARPEYO [Suspect]
     Active Substance: BUDESONIDE
     Indication: Haematuria
     Dosage: 2 PO QD
     Route: 048
  3. PREDNISONE [Suspect]
     Active Substance: PREDNISONE
     Dates: start: 202207, end: 202208
  4. METOPROLOL [Concomitant]
     Active Substance: METOPROLOL
  5. TRIAMTERENE [Concomitant]
     Active Substance: TRIAMTERENE
  6. OLMESARTAN [Concomitant]
     Active Substance: OLMESARTAN
  7. URSODIOL [Concomitant]
     Active Substance: URSODIOL
  8. CALCIUM [Concomitant]
     Active Substance: CALCIUM
  9. LEVOTHYROXINE [Concomitant]
     Active Substance: LEVOTHYROXINE
  10. AMLODIPINE [Concomitant]
     Active Substance: AMLODIPINE BESYLATE

REACTIONS (3)
  - Fatigue [Recovering/Resolving]
  - Prescribed underdose [Not Recovered/Not Resolved]
  - Type 2 diabetes mellitus [Recovering/Resolving]

NARRATIVE: CASE EVENT DATE: 20220701
